FAERS Safety Report 7426467-2 (Version None)
Quarter: 2011Q2

REPORT INFORMATION
  Report Type: 
  Country: None (occurrence: None)
  Receive Date: 20110420
  Receipt Date: 20100413
  Transmission Date: 20111010
  Serious: Yes (Other)
  Sender: FDA-Public Use
  Company Number: PHHY2010DE91008

PATIENT
  Sex: Female

DRUGS (2)
  1. INSULIN [Concomitant]
  2. EXTAVIA [Suspect]
     Dosage: UNK
     Route: 058
     Dates: start: 20100325

REACTIONS (5)
  - DRUG INTOLERANCE [None]
  - ASTHMA [None]
  - BRAIN NEOPLASM BENIGN [None]
  - INJECTION SITE HAEMORRHAGE [None]
  - BLOOD GLUCOSE ABNORMAL [None]
